FAERS Safety Report 4499011-X (Version None)
Quarter: 2004Q4

REPORT INFORMATION
  Report Type: 
  Country: None (occurrence: None)
  Receive Date: 20041108
  Receipt Date: 20041027
  Transmission Date: 20050328
  Serious: Yes (Other)
  Sender: FDA-Public Use
  Company Number: US-2004-028503

PATIENT
  Age: 26 Year
  Sex: Female

DRUGS (1)
  1. MIRENA [Suspect]
     Indication: CONTRACEPTION
     Dosage: 20 MCG/DAY, CONT, INTRA-UTERINE
     Route: 015
     Dates: start: 20021101

REACTIONS (3)
  - DEVICE FAILURE [None]
  - IUCD COMPLICATION [None]
  - OVARIAN CYST [None]
